FAERS Safety Report 25046736 (Version 3)
Quarter: 2025Q1

REPORT INFORMATION
  Report Type: Spontaneous
  Country: US (occurrence: US)
  Receive Date: 20250306
  Receipt Date: 20250331
  Transmission Date: 20250408
  Serious: Yes (Hospitalization, Other)
  Sender: DR REDDYS
  Company Number: None

PATIENT
  Age: 6 Decade
  Sex: Male

DRUGS (26)
  1. TOBRAMYCIN [Suspect]
     Active Substance: TOBRAMYCIN
     Indication: Enterococcal infection
  2. TOBRAMYCIN [Suspect]
     Active Substance: TOBRAMYCIN
     Indication: Pseudomonas infection
  3. TOBRAMYCIN [Suspect]
     Active Substance: TOBRAMYCIN
     Indication: Urinary tract infection enterococcal
  4. TOBRAMYCIN [Suspect]
     Active Substance: TOBRAMYCIN
     Indication: Urinary tract infection
  5. TOBRAMYCIN [Suspect]
     Active Substance: TOBRAMYCIN
     Indication: Pseudomonas infection
  6. TOBRAMYCIN [Suspect]
     Active Substance: TOBRAMYCIN
     Indication: Pneumonia bacterial
  7. CEFTRIAXONE [Suspect]
     Active Substance: CEFTRIAXONE
     Indication: Enterococcal infection
  8. CEFTRIAXONE [Suspect]
     Active Substance: CEFTRIAXONE
     Indication: Pseudomonas infection
  9. CEFTRIAXONE [Suspect]
     Active Substance: CEFTRIAXONE
     Indication: Urinary tract infection enterococcal
  10. CEFTRIAXONE [Suspect]
     Active Substance: CEFTRIAXONE
     Indication: Urinary tract infection
  11. CEFTRIAXONE [Suspect]
     Active Substance: CEFTRIAXONE
     Indication: Pseudomonas infection
  12. CEFTRIAXONE [Suspect]
     Active Substance: CEFTRIAXONE
     Indication: Pneumonia bacterial
  13. AZITHROMYCIN [Suspect]
     Active Substance: AZITHROMYCIN
     Indication: Enterococcal infection
  14. AZITHROMYCIN [Suspect]
     Active Substance: AZITHROMYCIN
     Indication: Pseudomonas infection
  15. AZITHROMYCIN [Suspect]
     Active Substance: AZITHROMYCIN
     Indication: Urinary tract infection enterococcal
  16. AZITHROMYCIN [Suspect]
     Active Substance: AZITHROMYCIN
     Indication: Urinary tract infection
  17. AZITHROMYCIN [Suspect]
     Active Substance: AZITHROMYCIN
     Indication: Pseudomonas infection
  18. AZITHROMYCIN [Suspect]
     Active Substance: AZITHROMYCIN
     Indication: Pneumonia bacterial
  19. AMPICILLIN [Suspect]
     Active Substance: AMPICILLIN
     Indication: Enterococcal infection
  20. AMPICILLIN [Suspect]
     Active Substance: AMPICILLIN
     Indication: Pseudomonas infection
  21. AMPICILLIN [Suspect]
     Active Substance: AMPICILLIN
     Indication: Urinary tract infection enterococcal
  22. AMPICILLIN [Suspect]
     Active Substance: AMPICILLIN
     Indication: Urinary tract infection
  23. AMPICILLIN [Suspect]
     Active Substance: AMPICILLIN
     Indication: Pseudomonas infection
  24. AMPICILLIN [Suspect]
     Active Substance: AMPICILLIN
     Indication: Pneumonia bacterial
  25. TOZINAMERAN [Suspect]
     Active Substance: TOZINAMERAN
     Indication: COVID-19 immunisation
  26. HEPARIN [Concomitant]
     Active Substance: HEPARIN SODIUM
     Indication: Product used for unknown indication

REACTIONS (9)
  - Factor V inhibition [Recovering/Resolving]
  - Vitamin K deficiency [Recovering/Resolving]
  - Factor VII deficiency [Recovering/Resolving]
  - Factor X deficiency [Recovering/Resolving]
  - Mucosal haemorrhage [Recovering/Resolving]
  - Activated partial thromboplastin time prolonged [Recovering/Resolving]
  - Prothrombin time prolonged [Recovering/Resolving]
  - Acquired factor V deficiency [Recovering/Resolving]
  - Product use in unapproved indication [Unknown]
